FAERS Safety Report 5005669-9 (Version None)
Quarter: 2006Q2

REPORT INFORMATION
  Report Type: 
  Country: None (occurrence: None)
  Receive Date: 20060515
  Receipt Date: 20060504
  Transmission Date: 20061013
  Serious: Yes (Death)
  Sender: FDA-Public Use
  Company Number: 2006-05-0323

PATIENT
  Sex: Female

DRUGS (1)
  1. PEG-INTRON [Suspect]
     Dosage: SUBCUTANEOUS
     Route: 058

REACTIONS (1)
  - DEATH [None]
